FAERS Safety Report 8098847-6 (Version None)
Quarter: 2012Q1

REPORT INFORMATION
  Report Type: 
  Country: None (occurrence: None)
  Receive Date: 20120129
  Receipt Date: 20110924
  Transmission Date: 20120608
  Serious: No
  Sender: FDA-Public Use
  Company Number: US-ABBOTT-11P-163-0857655-00

PATIENT
  Age: 57 Year
  Sex: Female

DRUGS (4)
  1. ZYRTEC [Concomitant]
     Indication: HYPERSENSITIVITY
  2. HUMIRA [Suspect]
     Indication: ANKYLOSING SPONDYLITIS
     Dates: start: 20110908
  3. SINGULAIR [Concomitant]
     Indication: SEASONAL ALLERGY
  4. AMBIEN [Concomitant]
     Indication: INSOMNIA

REACTIONS (1)
  - INJECTION SITE URTICARIA [None]
